FAERS Safety Report 10104839 (Version 3)
Quarter: 2014Q3

REPORT INFORMATION
  Report Type: Report from Study
  Country: KR (occurrence: KR)
  Receive Date: 20140424
  Receipt Date: 20140806
  Transmission Date: 20150326
  Serious: Yes (Hospitalization)
  Sender: FDA-Public Use
  Company Number: KR-EXELIXIS-XL18414004209

PATIENT
  Age: 61 Year
  Sex: Male
  Weight: 61 kg

DRUGS (17)
  1. PHAZYME [Concomitant]
     Active Substance: DIMETHICONE 410
  2. DILATREND [Concomitant]
     Active Substance: CARVEDILOL
  3. BACLAN [Concomitant]
  4. TRANSAMINE [Concomitant]
  5. XL184 [Suspect]
     Active Substance: CABOZANTINIB
     Indication: HEPATOCELLULAR CARCINOMA
     Dosage: 60 MG, QD
     Route: 048
     Dates: start: 20140407, end: 20140417
  6. GODEX [Concomitant]
  7. PAMIDOL [Concomitant]
  8. CANDEMORE [Concomitant]
  9. GALVUSMET [Concomitant]
  10. ATORVA [Concomitant]
  11. MACPERAN [Concomitant]
  12. PERIAMIN [Concomitant]
  13. ROWACHOL [Concomitant]
  14. TABAXIN [Concomitant]
  15. CRAVIT [Concomitant]
     Active Substance: LEVOFLOXACIN
  16. XL184 [Suspect]
     Active Substance: CABOZANTINIB
     Dosage: 60 MG, QD
     Route: 048
     Dates: start: 20140430
  17. CODEINE [Concomitant]
     Active Substance: CODEINE

REACTIONS (2)
  - Pneumonia [Recovered/Resolved]
  - Dyspnoea [Recovered/Resolved]

NARRATIVE: CASE EVENT DATE: 20140415
